FAERS Safety Report 14675085 (Version 1)
Quarter: 2018Q1

REPORT INFORMATION
  Report Type: Spontaneous
  Country: US (occurrence: US)
  Receive Date: 20180323
  Receipt Date: 20180323
  Transmission Date: 20180509
  Serious: Yes (Other)
  Sender: FDA-Public Use
  Company Number: US-PFIZER INC-2018111756

PATIENT
  Sex: Male

DRUGS (1)
  1. GABAPENTIN. [Suspect]
     Active Substance: GABAPENTIN
     Indication: NEURALGIA
     Dosage: 1800 MG, DAILY
     Dates: start: 2009

REACTIONS (6)
  - Condition aggravated [Unknown]
  - Product use in unapproved indication [Unknown]
  - Stress [Unknown]
  - Diabetes mellitus [Unknown]
  - Burning sensation [Unknown]
  - Weight decreased [Unknown]

NARRATIVE: CASE EVENT DATE: 2009
